FAERS Safety Report 5233792-2 (Version None)
Quarter: 2007Q1

REPORT INFORMATION
  Report Type: 
  Country: None (occurrence: None)
  Receive Date: 20061208
  Receipt Date: 20060714
  Transmission Date: 20070707
  Serious: Yes (Other)
  Sender: FDA-Public Use
  Company Number: 2006UW14503

PATIENT
  Age: 75 Year
  Sex: Female
  Weight: 72.574 kg

DRUGS (7)
  1. CRESTOR [Suspect]
     Indication: BLOOD CHOLESTEROL INCREASED
     Dosage: 1 MG PO
     Route: 048
     Dates: start: 20060711
  2. TOPROL-XL [Concomitant]
  3. COUMADIN [Concomitant]
  4. SYNTHROID [Concomitant]
  5. LISINOPRIL [Concomitant]
  6. PREMARIN /CH/ [Concomitant]
  7. SPIRONOLACTONE [Concomitant]

REACTIONS (1)
  - TINNITUS [None]
